FAERS Safety Report 7429002-8 (Version None)
Quarter: 2011Q2

REPORT INFORMATION
  Report Type: 
  Country: None (occurrence: None)
  Receive Date: 20110421
  Receipt Date: 20110410
  Transmission Date: 20111010
  Serious: Yes (Hospitalization)
  Sender: FDA-Public Use
  Company Number: EG-SANOFI-AVENTIS-2011SA022421

PATIENT
  Age: 59 Year
  Sex: Female

DRUGS (4)
  1. DIAMICRON [Concomitant]
     Indication: DIABETES MELLITUS
     Route: 048
  2. NATRILIX - SLOW RELEASE [Concomitant]
     Indication: HYPERTENSION
     Route: 048
  3. AMARYL [Concomitant]
     Indication: DIABETES MELLITUS
     Route: 048
  4. INSULIN GLARGINE [Suspect]
     Indication: TYPE 2 DIABETES MELLITUS
     Route: 058
     Dates: start: 20110124

REACTIONS (2)
  - DRUG INEFFECTIVE [None]
  - DIABETIC HYPERGLYCAEMIC COMA [None]
